FAERS Safety Report 9165489 (Version 2)
Quarter: 2013Q3

REPORT INFORMATION
  Report Type: Spontaneous
  Country: US (occurrence: US)
  Receive Date: 20130315
  Receipt Date: 20130813
  Transmission Date: 20140515
  Serious: Yes (Hospitalization)
  Sender: FDA-Public Use
  Company Number: US-BAYER-2013-030878

PATIENT
  Age: 34 Year
  Sex: Female

DRUGS (13)
  1. YASMIN [Suspect]
     Dosage: UNK
     Dates: start: 200502, end: 201107
  2. YAZ [Suspect]
     Dosage: UNK
     Dates: start: 200502, end: 201107
  3. OCELLA [Suspect]
     Dosage: UNK
     Dates: start: 200502, end: 201107
  4. LEXAPRO [Concomitant]
     Dosage: 20 MG, UNK
     Route: 048
  5. CLOBETASOL [Concomitant]
     Dosage: 0.05 APPLY THIN LAYER TO AFFECTED AREA BID
     Route: 061
  6. FISH OIL [Concomitant]
     Dosage: UNK UNK, QD
     Route: 048
  7. BENADRYL [Concomitant]
     Indication: INSOMNIA
  8. VITAMIIN C [Concomitant]
     Dosage: UNK UNK, QD
     Route: 048
  9. VITAMIN B COMPLEX [B3,B6,B2,B1 HCL] [Concomitant]
     Dosage: UNK UNK, QD
     Route: 048
  10. MULTIVITAMIN [Concomitant]
     Dosage: UNK UNK, QD
     Route: 048
  11. CALCIUM [Concomitant]
     Route: 048
  12. KEFLEX [Concomitant]
     Indication: SINUSITIS
  13. TYLENOL [Concomitant]
     Indication: PAIN

REACTIONS (7)
  - Pulmonary embolism [None]
  - Injury [None]
  - Pain [None]
  - General physical health deterioration [None]
  - Emotional distress [None]
  - Anxiety [None]
  - Pain [None]
